FAERS Safety Report 15731251 (Version 2)
Quarter: 2020Q1

REPORT INFORMATION
  Report Type: Spontaneous
  Country: US (occurrence: US)
  Receive Date: 20181217
  Receipt Date: 20200210
  Transmission Date: 20200409
  Serious: Yes (Hospitalization)
  Sender: FDA-Public Use
  Company Number: US-VERTEX PHARMACEUTICALS-2018-009432

PATIENT
  Age: 42 Year
  Sex: Male

DRUGS (27)
  1. TRESIBA [Concomitant]
     Active Substance: INSULIN DEGLUDEC
  2. SODIUM CHLORIDE. [Concomitant]
     Active Substance: SODIUM CHLORIDE
  3. VITAMIN D [COLECALCIFEROL] [Concomitant]
     Active Substance: CHOLECALCIFEROL
  4. HYPERSAL [Concomitant]
     Active Substance: SODIUM CHLORIDE
  5. BETAMETHASONE. [Concomitant]
     Active Substance: BETAMETHASONE
  6. TRISIBAM [Concomitant]
  7. NOVOLOG [Concomitant]
     Active Substance: INSULIN ASPART
  8. VOLTAREN [DICLOFENAC] [Concomitant]
     Active Substance: DICLOFENAC SODIUM
  9. ONDANSETRON [Concomitant]
     Active Substance: ONDANSETRON
  10. ALBUTEROL                          /00139501/ [Concomitant]
     Active Substance: ALBUTEROL
  11. NASONEX [Concomitant]
     Active Substance: MOMETASONE FUROATE
  12. TRAMADOL. [Concomitant]
     Active Substance: TRAMADOL
  13. GINGER ROOT [ZINGIBER OFFICINALE ROOT] [Concomitant]
  14. AZITHROMYCIN ANHYDROUS. [Concomitant]
     Active Substance: AZITHROMYCIN ANHYDROUS
  15. CELECOXIB. [Concomitant]
     Active Substance: CELECOXIB
  16. OMEPRAZOLE. [Concomitant]
     Active Substance: OMEPRAZOLE
  17. LISINOPRIL. [Concomitant]
     Active Substance: LISINOPRIL
  18. ZENPEP [Concomitant]
     Active Substance: PANCRELIPASE AMYLASE\PANCRELIPASE LIPASE\PANCRELIPASE PROTEASE
  19. CIPROFLOXACIN. [Concomitant]
     Active Substance: CIPROFLOXACIN
  20. VITAMIN E [Concomitant]
     Active Substance: .ALPHA.-TOCOPHEROL
  21. SYMDEKO [Suspect]
     Active Substance: IVACAFTOR\TEZACAFTOR
     Indication: CYSTIC FIBROSIS
     Dosage: TEZACAFTOR 100MG /IVACAFTOR 150MG AM, IVACAFTOR 150MG PM
     Route: 048
     Dates: start: 201804, end: 20200125
  22. CAYSTON [Concomitant]
     Active Substance: AZTREONAM
  23. CELEBREX [Concomitant]
     Active Substance: CELECOXIB
  24. METAXALONE. [Concomitant]
     Active Substance: METAXALONE
  25. MAGNESIUM OXIDE. [Concomitant]
     Active Substance: MAGNESIUM OXIDE
  26. PULMOZYME [Concomitant]
     Active Substance: DORNASE ALFA
  27. TOBRAMYCIN. [Concomitant]
     Active Substance: TOBRAMYCIN

REACTIONS (2)
  - Clavicle fracture [Unknown]
  - Pneumonia [Unknown]

NARRATIVE: CASE EVENT DATE: 2018
